FAERS Safety Report 5553141-X (Version None)
Quarter: 2007Q4

REPORT INFORMATION
  Report Type: 
  Country: None (occurrence: None)
  Receive Date: 20071211
  Receipt Date: 20071202
  Transmission Date: 20080405
  Serious: Yes (Hospitalization)
  Sender: FDA-Public Use
  Company Number: CHPA2007US13083

PATIENT
  Age: 24 Month
  Sex: Male
  Weight: 13.6 kg

DRUGS (1)
  1. TRIAMINIC NIGHT TIME COLD + COUGH (NCH)(DIPHENHYDRAMINE, PHENYLEPHRINE [Suspect]
     Dosage: ONCE SINGLE, ORAL
     Route: 048
     Dates: start: 20071201, end: 20071201

REACTIONS (2)
  - ACCIDENTAL DRUG INTAKE BY CHILD [None]
  - NO ADVERSE DRUG REACTION [None]
